FAERS Safety Report 4413333-X (Version None)
Quarter: 2004Q3

REPORT INFORMATION
  Report Type: 
  Country: None (occurrence: None)
  Receive Date: 20040802
  Receipt Date: 20040723
  Transmission Date: 20050211
  Serious: Yes (Other)
  Sender: FDA-Public Use
  Company Number: US-BRISTOL-MYERS SQUIBB COMPANY-12650503

PATIENT
  Age: 59 Year
  Sex: Male

DRUGS (5)
  1. ERBITUX [Suspect]
     Indication: COLON CANCER METASTATIC
     Dosage: REC'D TOTAL OF 13 DOSES, STARTED ABOUT 4 MONTHS AGO. TX STOPPED, THEN RESUMED (22-JUL-04)
     Route: 042
     Dates: start: 20040101, end: 20040101
  2. CAMPTOSAR [Suspect]
     Indication: COLON CANCER METASTATIC
     Dosage: INITIATED ABOUT 4 MO. AGO, DECREASED TO EVERY OTHER WEEK
     Dates: start: 20040101, end: 20040101
  3. BENADRYL [Concomitant]
     Indication: PREMEDICATION
     Route: 042
     Dates: start: 20040101, end: 20040101
  4. TYLENOL [Concomitant]
     Indication: PREMEDICATION
     Route: 048
     Dates: start: 20040101, end: 20040101
  5. ZOFRAN [Concomitant]
     Indication: PREMEDICATION
     Dates: start: 20040101, end: 20040101

REACTIONS (5)
  - ANOREXIA [None]
  - BLOOD CALCIUM DECREASED [None]
  - NAUSEA [None]
  - WEIGHT DECREASED [None]
  - WHITE BLOOD CELL COUNT DECREASED [None]
